FAERS Safety Report 14800916 (Version 2)
Quarter: 2018Q2

REPORT INFORMATION
  Report Type: Spontaneous
  Country: JP (occurrence: JP)
  Receive Date: 20180424
  Receipt Date: 20180504
  Transmission Date: 20180711
  Serious: Yes (Hospitalization)
  Sender: FDA-Public Use
  Company Number: JP-ABBVIE-18P-087-2330552-00

PATIENT
  Age: 30 Year
  Sex: Male

DRUGS (3)
  1. SANILVUDINE [Concomitant]
     Active Substance: STAVUDINE
     Indication: HIV INFECTION
  2. LAMIVUDINE. [Concomitant]
     Active Substance: LAMIVUDINE
     Indication: HIV INFECTION
  3. KALETRA [Suspect]
     Active Substance: LOPINAVIR\RITONAVIR
     Indication: HIV INFECTION
     Route: 048

REACTIONS (4)
  - Haematoma [Unknown]
  - Hepatic cirrhosis [Unknown]
  - Muscle haemorrhage [Unknown]
  - Hypersplenism [Unknown]
